FAERS Safety Report 6436238-1 (Version None)
Quarter: 2009Q4

REPORT INFORMATION
  Report Type: 
  Country: None (occurrence: None)
  Receive Date: 20091111
  Receipt Date: 20091106
  Transmission Date: 20100525
  Serious: Yes (Congenital Anomaly)
  Sender: FDA-Public Use
  Company Number: A0681290A

PATIENT
  Sex: Female

DRUGS (9)
  1. PAXIL CR [Suspect]
     Indication: DRUG USE FOR UNKNOWN INDICATION
     Dosage: 20MG PER DAY
  2. VITAMIN TAB [Concomitant]
  3. MACROBID [Concomitant]
     Dates: start: 20031001
  4. ALBUTEROL [Concomitant]
  5. DECADRON [Concomitant]
     Dates: start: 20031210
  6. SINGULAIR [Concomitant]
     Dates: start: 20031210
  7. AMOXICILLIN [Concomitant]
     Dates: start: 20031210
  8. FLOVENT [Concomitant]
  9. LEVAQUIN [Concomitant]
     Dates: start: 20030825

REACTIONS (3)
  - CONGENITAL ANOMALY [None]
  - DRUG EXPOSURE DURING PREGNANCY [None]
  - VENTRICULAR SEPTAL DEFECT [None]
